FAERS Safety Report 15779327 (Version 3)
Quarter: 2019Q1

REPORT INFORMATION
  Report Type: Report from Study
  Country: CA (occurrence: CA)
  Receive Date: 20190101
  Receipt Date: 20190123
  Transmission Date: 20190417
  Serious: Yes (Other)
  Sender: FDA-Public Use
  Company Number: CA-GLAXOSMITHKLINE-CA2018GSK233176

PATIENT
  Sex: Female

DRUGS (1)
  1. MEPOLIZUMAB [Suspect]
     Active Substance: MEPOLIZUMAB
     Indication: ASTHMA
     Dosage: 100 MG, Z,MONTHLY
     Route: 042

REACTIONS (6)
  - Immunosuppression [Unknown]
  - Nasopharyngitis [Unknown]
  - Head discomfort [Unknown]
  - Peak expiratory flow rate decreased [Unknown]
  - Rhinorrhoea [Unknown]
  - Feeling abnormal [Unknown]
